FAERS Safety Report 5124837-9 (Version None)
Quarter: 2006Q4

REPORT INFORMATION
  Report Type: 
  Country: None (occurrence: None)
  Receive Date: 20061011
  Receipt Date: 20060926
  Transmission Date: 20070319
  Serious: Yes (Other)
  Sender: FDA-Public Use
  Company Number: HU-ROCHE-464718

PATIENT
  Age: 16 Year
  Sex: Male
  Weight: 74 kg

DRUGS (4)
  1. ROACCUTAN [Suspect]
     Indication: ACNE CONGLOBATA
     Dosage: DOSING AMOUT REPORTED AS 2 X 10 MG.
     Route: 048
     Dates: start: 20060115, end: 20060315
  2. ROACCUTAN [Suspect]
     Dosage: DOSING AMOUNT REPORTED AS 10 + 20 MG.
     Route: 048
     Dates: start: 20040915, end: 20050115
  3. ROACCUTAN [Suspect]
     Route: 048
     Dates: start: 20050115, end: 20060115
  4. SERETIDE [Concomitant]
     Dosage: DRUG REPORTED AS SALETEROL + FLUTICAZONE PRPIONATE / SERETIDE DISCUS. DOSING AMOUNT REPORTED AS+
     Route: 055
     Dates: start: 20050715

REACTIONS (2)
  - COLITIS ULCERATIVE [None]
  - HAEMATOCHEZIA [None]
